FAERS Safety Report 5496994-6 (Version None)
Quarter: 2007Q4

REPORT INFORMATION
  Report Type: 
  Country: None (occurrence: None)
  Receive Date: 20071025
  Receipt Date: 20071019
  Transmission Date: 20080405
  Serious: Yes (Hospitalization, Other)
  Sender: FDA-Public Use
  Company Number: US-AVENTIS-200715742US

PATIENT
  Sex: Female

DRUGS (9)
  1. ALLEGRA-D 12 HOUR [Suspect]
     Indication: SEASONAL ALLERGY
     Dosage: DOSE: UNK
     Route: 048
     Dates: start: 20030101, end: 20070301
  2. CARDIA [Concomitant]
     Indication: ATRIAL FIBRILLATION
     Dosage: DOSE: UNK
     Dates: start: 20051201
  3. DIGOXIN [Concomitant]
     Dosage: DOSE: UNK
     Dates: start: 20060501
  4. SOTALOL HYDROCHLORIDE [Concomitant]
     Dosage: DOSE: UNK
     Dates: start: 20060501
  5. WARFARIN SODIUM [Concomitant]
     Indication: ATRIAL FIBRILLATION
     Dosage: DOSE: UNK
     Dates: start: 20051201
  6. VYTORIN [Concomitant]
     Dosage: DOSE: UNK
  7. SYNTHROID [Concomitant]
     Indication: HYPOTHYROIDISM
     Dosage: DOSE: UNK
     Dates: start: 19750101
  8. FUROSEMIDE [Concomitant]
     Dosage: DOSE: UNK
     Dates: start: 20020101
  9. POTASSIUM CHLORIDE [Concomitant]
     Dosage: DOSE: UNK
     Dates: start: 20020101

REACTIONS (12)
  - ABDOMINAL PAIN [None]
  - CONVULSION [None]
  - CYSTITIS INTERSTITIAL [None]
  - HYPOAESTHESIA [None]
  - MALAISE [None]
  - MASS [None]
  - MEDICATION RESIDUE [None]
  - MYOCARDIAL INFARCTION [None]
  - PARAESTHESIA [None]
  - RENAL CYST [None]
  - URINARY INCONTINENCE [None]
  - VOMITING [None]
